FAERS Safety Report 22806889 (Version 3)
Quarter: 2024Q1

REPORT INFORMATION
  Report Type: Spontaneous
  Country: US (occurrence: US)
  Receive Date: 20230810
  Receipt Date: 20240104
  Transmission Date: 20240409
  Serious: Yes (Hospitalization)
  Sender: FDA-Public Use
  Company Number: US-JNJFOC-20230817392

PATIENT
  Age: 75 Year
  Sex: Female
  Weight: 85.352 kg

DRUGS (10)
  1. TREMFYA [Suspect]
     Active Substance: GUSELKUMAB
     Indication: Psoriatic arthropathy
     Route: 058
     Dates: start: 202306
  2. TREMFYA [Suspect]
     Active Substance: GUSELKUMAB
     Route: 065
     Dates: start: 20230727
  3. ROSUVASTATIN [Concomitant]
     Active Substance: ROSUVASTATIN
     Indication: Blood cholesterol
  4. HYZAAR [Concomitant]
     Active Substance: HYDROCHLOROTHIAZIDE\LOSARTAN POTASSIUM
     Indication: Hypertension
     Dosage: 100/25MG
  5. FAMOTIDINE [Concomitant]
     Active Substance: FAMOTIDINE
     Dosage: AS NEEDED
  6. DULOXETINE [Concomitant]
     Active Substance: DULOXETINE
  7. METOPROLOL [Concomitant]
     Active Substance: METOPROLOL
  8. TIZANIDINE [Concomitant]
     Active Substance: TIZANIDINE
     Indication: Myalgia
  9. TYLENOL EXTRA STRENGTH [Concomitant]
     Active Substance: ACETAMINOPHEN
     Indication: Pain
  10. BENADRYL [Concomitant]
     Active Substance: DIPHENHYDRAMINE HYDROCHLORIDE

REACTIONS (2)
  - Colitis [Unknown]
  - Dehydration [Unknown]

NARRATIVE: CASE EVENT DATE: 20230101
